FAERS Safety Report 16195011 (Version 2)
Quarter: 2022Q1

REPORT INFORMATION
  Report Type: Spontaneous
  Country: IT (occurrence: IT)
  Receive Date: 20190415
  Receipt Date: 20220106
  Transmission Date: 20220424
  Serious: Yes (Other)
  Sender: FDA-Public Use
  Company Number: IT-AUROBINDO-AUR-APL-2019-019619

PATIENT
  Age: 39 Year
  Sex: Female
  Weight: 56.5 kg

DRUGS (2)
  1. LEVOFLOXACIN [Suspect]
     Active Substance: LEVOFLOXACIN
     Indication: Plasmodium falciparum infection
     Dosage: 750 MILLIGRAM, ONCE A DAY
     Route: 065
     Dates: start: 2016
  2. ARTENIMOL\PIPERAQUINE PHOSPHATE [Suspect]
     Active Substance: ARTENIMOL\PIPERAQUINE PHOSPHATE
     Indication: Plasmodium falciparum infection
     Dosage: 320MG/40 MG/DAY FOR THREE DAYS
     Route: 065
     Dates: start: 2016

REACTIONS (1)
  - Treatment failure [Unknown]

NARRATIVE: CASE EVENT DATE: 20160101
